FAERS Safety Report 9607860 (Version 1)
Quarter: 2013Q4

REPORT INFORMATION
  Report Type: Spontaneous
  Country: US (occurrence: None)
  Receive Date: 20131007
  Receipt Date: 20131007
  Transmission Date: 20140711
  Serious: No
  Sender: FDA-Public Use
  Company Number: None

PATIENT
  Sex: Female

DRUGS (1)
  1. ENBREL [Suspect]
     Indication: PRODUCT USED FOR UNKNOWN INDICATION
     Dosage: 50MG, ONCE WEEKLY, SUB Q
     Route: 058
     Dates: start: 20130813

REACTIONS (6)
  - Epistaxis [None]
  - Cough [None]
  - Back pain [None]
  - Nausea [None]
  - Headache [None]
  - Fatigue [None]
